FAERS Safety Report 5699660-7 (Version None)
Quarter: 2008Q2

REPORT INFORMATION
  Report Type: 
  Country: None (occurrence: None)
  Receive Date: 20080410
  Receipt Date: 20080402
  Transmission Date: 20081010
  Serious: No
  Sender: FDA-Public Use
  Company Number: PHHY2008JP02760

PATIENT
  Age: 80 Year
  Sex: Female

DRUGS (5)
  1. COMTAN [Suspect]
     Route: 048
  2. CARBIDOPA AND LEVODOPA [Suspect]
     Route: 048
  3. SELEGILINE HCL [Suspect]
     Route: 048
  4. THYRADIN [Suspect]
  5. VASOLAN [Concomitant]

REACTIONS (1)
  - TACHYCARDIA [None]
